FAERS Safety Report 12620151 (Version 1)
Quarter: 2016Q3

REPORT INFORMATION
  Report Type: Spontaneous
  Country: US (occurrence: US)
  Receive Date: 20160803
  Receipt Date: 20160803
  Transmission Date: 20161109
  Serious: Yes (Other)
  Sender: FDA-Public Use
  Company Number: US-JAZZ-2016-US-014081

PATIENT
  Sex: Female

DRUGS (4)
  1. ADDERALL [Suspect]
     Active Substance: AMPHETAMINE ASPARTATE\AMPHETAMINE SULFATE\DEXTROAMPHETAMINE SACCHARATE\DEXTROAMPHETAMINE SULFATE
     Indication: PRODUCT USED FOR UNKNOWN INDICATION
  2. XYREM [Suspect]
     Active Substance: SODIUM OXYBATE
     Indication: NARCOLEPSY
     Dosage: 1.5 G, BID
     Route: 048
     Dates: start: 201602, end: 2016
  3. NORTRIPTYLINE [Suspect]
     Active Substance: NORTRIPTYLINE
     Indication: CATAPLEXY
     Dosage: UNK
  4. XYREM [Suspect]
     Active Substance: SODIUM OXYBATE
     Indication: CATAPLEXY

REACTIONS (5)
  - Anxiety [Unknown]
  - Headache [Not Recovered/Not Resolved]
  - Laceration [Unknown]
  - Tendon injury [Unknown]
  - Cataplexy [Unknown]

NARRATIVE: CASE EVENT DATE: 2016
